FAERS Safety Report 24312602 (Version 1)
Quarter: 2024Q3

REPORT INFORMATION
  Report Type: Spontaneous
  Country: PT (occurrence: PT)
  Receive Date: 20240912
  Receipt Date: 20240912
  Transmission Date: 20241016
  Serious: Yes (Hospitalization)
  Sender: ABBVIE
  Company Number: PT-JNJFOC-20240913874

PATIENT
  Age: 66 Year
  Sex: Female

DRUGS (1)
  1. IMBRUVICA [Suspect]
     Active Substance: IBRUTINIB
     Indication: Chronic lymphocytic leukaemia
     Route: 048
     Dates: start: 202206

REACTIONS (4)
  - Pleural effusion [Recovered/Resolved]
  - Atrial fibrillation [Unknown]
  - Pericardial effusion [Recovered/Resolved]
  - Cardiac tamponade [Unknown]
